FAERS Safety Report 14663397 (Version 1)
Quarter: 2018Q1

REPORT INFORMATION
  Report Type: Spontaneous
  Country: US (occurrence: US)
  Receive Date: 20180321
  Receipt Date: 20180321
  Transmission Date: 20180509
  Serious: No
  Sender: FDA-Public Use
  Company Number: US-PFIZER INC-2018109731

PATIENT
  Sex: Female

DRUGS (1)
  1. ESTRING [Suspect]
     Active Substance: ESTRADIOL
     Indication: VULVITIS
     Dosage: UNK
     Route: 067

REACTIONS (2)
  - Vulvovaginal discomfort [Unknown]
  - Drug effective for unapproved indication [Unknown]
